FAERS Safety Report 7811034-9 (Version None)
Quarter: 2011Q4

REPORT INFORMATION
  Report Type: 
  Country: None (occurrence: None)
  Receive Date: 20111011
  Receipt Date: 20110930
  Transmission Date: 20120403
  Serious: Yes (Hospitalization, Disabling, Other)
  Sender: FDA-Public Use
  Company Number: 2008JP004656

PATIENT
  Age: 42 Year
  Sex: Female

DRUGS (23)
  1. LASIX [Concomitant]
  2. ADALAT [Concomitant]
  3. ALLEGRA [Concomitant]
  4. PAXIL [Concomitant]
  5. TACROLIMUS [Suspect]
     Indication: LUPUS NEPHRITIS
     Dosage: SEE IMAGE
     Route: 048
     Dates: start: 20110226, end: 20110502
  6. TACROLIMUS [Suspect]
     Indication: LUPUS NEPHRITIS
     Dosage: SEE IMAGE
     Route: 048
     Dates: start: 20080603, end: 20090602
  7. TACROLIMUS [Suspect]
     Indication: LUPUS NEPHRITIS
     Dosage: SEE IMAGE
     Route: 048
     Dates: start: 20080401, end: 20080602
  8. TACROLIMUS [Suspect]
     Indication: LUPUS NEPHRITIS
     Dosage: SEE IMAGE
     Route: 048
     Dates: start: 20070827, end: 20080331
  9. TACROLIMUS [Suspect]
     Indication: LUPUS NEPHRITIS
     Dosage: SEE IMAGE
     Route: 048
     Dates: start: 20090603, end: 20110117
  10. ONEALFA (ALFACALCIDOL) [Concomitant]
  11. ACECOL (TEMOCAPRIL HYDROCHLORIDE) [Concomitant]
  12. SALAGEN [Concomitant]
  13. OMEPRAZOLE [Concomitant]
  14. ZYLORIC (ALLOPURINOL SODIUM) [Concomitant]
  15. RISEDRONATE SODIUM [Concomitant]
  16. ALLOPURINOL [Concomitant]
  17. ANPLAG (SARPOGRELATE HYDROCHLORIDE) [Concomitant]
  18. PROTECADIN (LAFUTIDINE) [Concomitant]
  19. EVOXAC [Concomitant]
  20. BLOPRESS (CANDESARTAN CILEXETIL) [Concomitant]
  21. PREDNISOLONE [Concomitant]
  22. VIT K CAP [Concomitant]
  23. URSO 250 [Concomitant]

REACTIONS (17)
  - BLOOD CREATININE INCREASED [None]
  - BLOOD ALKALINE PHOSPHATASE INCREASED [None]
  - BILIARY CIRRHOSIS PRIMARY [None]
  - LUPUS NEPHRITIS [None]
  - SYSTEMIC LUPUS ERYTHEMATOSUS [None]
  - DECREASED APPETITE [None]
  - NEPHROGENIC ANAEMIA [None]
  - CARDIAC TAMPONADE [None]
  - PLATELET COUNT DECREASED [None]
  - RENAL FAILURE CHRONIC [None]
  - DISEASE COMPLICATION [None]
  - GAMMA-GLUTAMYLTRANSFERASE INCREASED [None]
  - BLOOD PRESSURE INCREASED [None]
  - PERICARDIAL EFFUSION [None]
  - CONDITION AGGRAVATED [None]
  - HAEMODIALYSIS [None]
  - DISEASE RECURRENCE [None]
